FAERS Safety Report 21462551 (Version 1)
Quarter: 2022Q4

REPORT INFORMATION
  Report Type: Spontaneous
  Country: US (occurrence: US)
  Receive Date: 20221016
  Receipt Date: 20221016
  Transmission Date: 20230113
  Serious: Yes (Other)
  Sender: FDA-Public Use
  Company Number: US-OTSUKA-2022_044432

PATIENT
  Sex: Female
  Weight: 63.5 kg

DRUGS (2)
  1. INQOVI [Suspect]
     Active Substance: CEDAZURIDINE\DECITABINE
     Indication: Leukaemia
     Dosage: UNK, EVERY DAY (QD) FOR 5 DAYS)
     Route: 065
     Dates: start: 20220829
  2. XANAX [Concomitant]
     Active Substance: ALPRAZOLAM
     Indication: Anxiety
     Dosage: UNK
     Route: 065

REACTIONS (7)
  - Platelet count decreased [Unknown]
  - White blood cell count decreased [Unknown]
  - Limb injury [Unknown]
  - Fall [Unknown]
  - Peripheral swelling [Unknown]
  - Pain in extremity [Unknown]
  - Product use in unapproved indication [Unknown]
